FAERS Safety Report 14342199 (Version 1)
Quarter: 2018Q1

REPORT INFORMATION
  Report Type: Spontaneous
  Country: US (occurrence: US)
  Receive Date: 20180102
  Receipt Date: 20180102
  Transmission Date: 20180509
  Serious: No
  Sender: FDA-Public Use
  Company Number: US-TEVA-780793USA

PATIENT

DRUGS (1)
  1. DULOXETINE. [Suspect]
     Active Substance: DULOXETINE
     Indication: DEPRESSION
     Route: 065

REACTIONS (6)
  - Product substitution issue [Unknown]
  - Drug hypersensitivity [Unknown]
  - Bone pain [Unknown]
  - Drug ineffective [Unknown]
  - Myalgia [Unknown]
  - Headache [Unknown]
